FAERS Safety Report 8585975-1 (Version None)
Quarter: 2012Q3

REPORT INFORMATION
  Report Type: 
  Country: None (occurrence: None)
  Receive Date: 20120810
  Receipt Date: 20120731
  Transmission Date: 20120928
  Serious: Yes (Hospitalization)
  Sender: FDA-Public Use
  Company Number: US-ACTELION-A-NJ2012-65719

PATIENT
  Age: 13 Month
  Sex: Male

DRUGS (3)
  1. SILDENAFIL [Concomitant]
  2. TRACLEER [Suspect]
     Indication: PULMONARY ARTERIAL HYPERTENSION
     Dosage: UNK
     Route: 048
  3. LASIX [Concomitant]

REACTIONS (2)
  - MITRAL VALVE REPLACEMENT [None]
  - MITRAL VALVE STENOSIS [None]
